FAERS Safety Report 23640797 (Version 2)
Quarter: 2024Q2

REPORT INFORMATION
  Report Type: Spontaneous
  Country: US (occurrence: US)
  Receive Date: 20240318
  Receipt Date: 20240419
  Transmission Date: 20240716
  Serious: No
  Sender: FDA-Public Use
  Company Number: US-BEH-2024169513

PATIENT
  Sex: Female

DRUGS (3)
  1. HIZENTRA [Suspect]
     Active Substance: HUMAN IMMUNOGLOBULIN G
     Indication: Humoral immune defect
     Dosage: 10 GRAM, QOW
     Route: 058
     Dates: start: 202305
  2. HIZENTRA [Suspect]
     Active Substance: HUMAN IMMUNOGLOBULIN G
     Dosage: 5 GRAM, QW
     Route: 065
  3. HIZENTRA [Suspect]
     Active Substance: HUMAN IMMUNOGLOBULIN G
     Dosage: 5 G, QW
     Route: 058
     Dates: start: 202305

REACTIONS (11)
  - Peripheral swelling [Unknown]
  - Pain [Unknown]
  - Pruritus [Unknown]
  - Dry skin [Unknown]
  - Muscle spasms [Unknown]
  - Weight increased [Unknown]
  - Varicose vein [Unknown]
  - Injection site discharge [Unknown]
  - Therapy change [Unknown]
  - Protein urine present [Unknown]
  - Fluid retention [Unknown]
